FAERS Safety Report 18939675 (Version 3)
Quarter: 2021Q2

REPORT INFORMATION
  Report Type: Report from Study
  Country: AR (occurrence: AR)
  Receive Date: 20210224
  Receipt Date: 20210401
  Transmission Date: 20210717
  Serious: No
  Sender: FDA-Public Use
  Company Number: AR-JNJFOC-20210236939

PATIENT
  Age: 80 Year
  Sex: Female

DRUGS (1)
  1. SIMPONI [Suspect]
     Active Substance: GOLIMUMAB
     Indication: RHEUMATOID ARTHRITIS
     Dosage: 50.00 MG/0.50 ML
     Route: 058
     Dates: start: 20160607

REACTIONS (2)
  - Oedema peripheral [Unknown]
  - Device deployment issue [Unknown]

NARRATIVE: CASE EVENT DATE: 202012
